FAERS Safety Report 9290800 (Version 1)
Quarter: 2013Q2

REPORT INFORMATION
  Report Type: Spontaneous
  Country: US (occurrence: US)
  Receive Date: 20130515
  Receipt Date: 20130515
  Transmission Date: 20140414
  Serious: Yes (Other)
  Sender: FDA-Public Use
  Company Number: US-BAYER-2013-056321

PATIENT
  Age: 82 Year
  Sex: Female
  Weight: 51.7 kg

DRUGS (3)
  1. BAYER GENUINE ASPIRIN ORIGINAL STRENGTH [Suspect]
     Indication: BACK PAIN
     Dosage: 1 DF, PRN
     Route: 048
     Dates: start: 20130430, end: 20130502
  2. BAYER GENUINE ASPIRIN ORIGINAL STRENGTH [Suspect]
     Indication: BACK PAIN
     Dosage: 1 DF, BID
     Dates: start: 20130502
  3. PRILOSEC [Concomitant]

REACTIONS (2)
  - Dyspnoea [Recovered/Resolved]
  - Mouth breathing [Recovered/Resolved]
